FAERS Safety Report 17015202 (Version 1)
Quarter: 2019Q4

REPORT INFORMATION
  Report Type: Spontaneous
  Country: US (occurrence: US)
  Receive Date: 20191108
  Receipt Date: 20191108
  Transmission Date: 20200122
  Serious: Yes (Disabling, Other)
  Sender: FDA-Public Use
  Company Number: None

PATIENT
  Age: 22 Year
  Sex: Female
  Weight: 51.75 kg

DRUGS (3)
  1. L-METHYLFOLATE [Concomitant]
     Active Substance: LEVOMEFOLIC ACID
  2. XYREM [Suspect]
     Active Substance: SODIUM OXYBATE
     Indication: NARCOLEPSY
     Dosage: ?          OTHER FREQUENCY:TWICE AT NIGHT;OTHER ROUTE:DILUTED WITH 1/4 CUP WATER?
     Dates: start: 20191029, end: 20191105
  3. PRISTIQ EXTENDED-RELEASE [Concomitant]
     Active Substance: DESVENLAFAXINE SUCCINATE

REACTIONS (12)
  - Feeling abnormal [None]
  - Paralysis [None]
  - Panic reaction [None]
  - Anxiety [None]
  - Dissociation [None]
  - Muscle spasms [None]
  - Aphasia [None]
  - Amnesia [None]
  - Euphoric mood [None]
  - Mental disorder [None]
  - Hypoaesthesia [None]
  - Fatigue [None]
